FAERS Safety Report 6912360-8 (Version None)
Quarter: 2010Q3

REPORT INFORMATION
  Report Type: 
  Country: None (occurrence: None)
  Receive Date: 20100806
  Receipt Date: 20080410
  Transmission Date: 20110219
  Serious: No
  Sender: FDA-Public Use
  Company Number: US-PFIZER INC-2008024529

PATIENT
  Sex: Female
  Weight: 60 kg

DRUGS (6)
  1. DETROL [Suspect]
     Indication: HYPERTONIC BLADDER
     Route: 048
     Dates: start: 20080311, end: 20080314
  2. DETROL [Suspect]
     Indication: URGE INCONTINENCE
  3. LISINOPRIL [Concomitant]
  4. ASCORBIC ACID [Concomitant]
  5. VITAMIN B-12 [Concomitant]
  6. CALCIUM [Concomitant]

REACTIONS (2)
  - DYSURIA [None]
  - POLLAKIURIA [None]
